FAERS Safety Report 12321943 (Version 1)
Quarter: 2016Q2

REPORT INFORMATION
  Report Type: Spontaneous
  Country: US (occurrence: None)
  Receive Date: 20160429
  Receipt Date: 20160429
  Transmission Date: 20160815
  Serious: Yes (Other)
  Sender: FDA-Public Use
  Company Number: None

PATIENT
  Age: 44 Year
  Sex: Male
  Weight: 60.1 kg

DRUGS (2)
  1. BUPROPION. [Suspect]
     Active Substance: BUPROPION
     Indication: SMOKING CESSATION THERAPY
     Dates: start: 20160217, end: 20160415
  2. BUPROPION. [Suspect]
     Active Substance: BUPROPION
     Indication: AFFECTIVE DISORDER
     Dates: start: 20160217, end: 20160415

REACTIONS (2)
  - Road traffic accident [None]
  - Seizure [None]

NARRATIVE: CASE EVENT DATE: 20160415
